FAERS Safety Report 17072361 (Version 2)
Quarter: 2020Q1

REPORT INFORMATION
  Report Type: Spontaneous
  Country: JP (occurrence: JP)
  Receive Date: 20191125
  Receipt Date: 20200121
  Transmission Date: 20200409
  Serious: Yes (Death, Hospitalization, Disabling)
  Sender: FDA-Public Use
  Company Number: JP-CELGENEUS-JPN-20191109102

PATIENT
  Age: 66 Year
  Sex: Female
  Weight: 61.4 kg

DRUGS (8)
  1. ABRAXANE [Suspect]
     Active Substance: PACLITAXEL
     Indication: PANCREATIC CARCINOMA METASTATIC
     Dosage: 125 MILLIGRAM
     Route: 013
     Dates: start: 20190905
  2. GEMCITABINE. [Concomitant]
     Active Substance: GEMCITABINE
     Indication: PANCREATIC CARCINOMA METASTATIC
     Route: 013
     Dates: start: 20190801, end: 20190821
  3. GEMCITABINE. [Concomitant]
     Active Substance: GEMCITABINE
     Dosage: 1200 MILLIGRAM
     Route: 013
     Dates: start: 20190905, end: 20190925
  4. RED BLOOD CELLS [Concomitant]
     Active Substance: HUMAN RED BLOOD CELL
     Indication: PRODUCT USED FOR UNKNOWN INDICATION
     Route: 065
     Dates: start: 20190806, end: 20190807
  5. TOLVAPTAN [Concomitant]
     Active Substance: TOLVAPTAN
     Indication: PRODUCT USED FOR UNKNOWN INDICATION
     Dosage: 3.25 MILLIGRAM
     Route: 065
     Dates: start: 20191009, end: 20191011
  6. SCOPOLIA EXTRACT [Concomitant]
     Active Substance: HERBALS
     Indication: DIARRHOEA
     Route: 065
     Dates: start: 201909
  7. LASIX [Concomitant]
     Active Substance: FUROSEMIDE
     Indication: PRODUCT USED FOR UNKNOWN INDICATION
     Route: 041
     Dates: start: 20191009
  8. MIROGABALIN BESYLATE. [Concomitant]
     Active Substance: MIROGABALIN BESYLATE
     Indication: PRODUCT USED FOR UNKNOWN INDICATION
     Route: 041
     Dates: start: 20191009

REACTIONS (4)
  - Pancreatic carcinoma metastatic [Fatal]
  - Neuropathy peripheral [Not Recovered/Not Resolved]
  - Intentional product use issue [Recovered/Resolved]
  - Oedema peripheral [Not Recovered/Not Resolved]

NARRATIVE: CASE EVENT DATE: 201909
